FAERS Safety Report 5046426-7 (Version None)
Quarter: 2006Q3

REPORT INFORMATION
  Report Type: 
  Country: None (occurrence: None)
  Receive Date: 20060710
  Receipt Date: 20051130
  Transmission Date: 20061208
  Serious: Yes (Other)
  Sender: FDA-Public Use
  Company Number: 8013248

PATIENT
  Age: 20 Year
  Sex: Female

DRUGS (7)
  1. PAXIL CR [Suspect]
     Indication: DEPRESSION
     Dosage: 37.5MG PER DAY
  2. ZYRTEC [Suspect]
     Indication: MULTIPLE ALLERGIES
     Dosage: 10MG PER DAY
  3. KEPPRA [Suspect]
     Dosage: 2000MG PER DAY
     Dates: start: 20030301, end: 20050516
  4. DILANTIN [Suspect]
     Indication: EPILEPSY
  5. SEROQUEL [Suspect]
     Indication: SLEEP DISORDER
     Dosage: 50MG AS REQUIRED
  6. METHYLCELLULOSE [Suspect]
  7. FOLIC ACID [Suspect]
     Dosage: 4MG PER DAY

REACTIONS (3)
  - COMPLEX PARTIAL SEIZURES [None]
  - PREMATURE LABOUR [None]
  - SIMPLE PARTIAL SEIZURES [None]
